FAERS Safety Report 12138191 (Version 1)
Quarter: 2016Q1

REPORT INFORMATION
  Report Type: Spontaneous
  Country: IN (occurrence: IN)
  Receive Date: 20160302
  Receipt Date: 20160302
  Transmission Date: 20160526
  Serious: Yes (Other)
  Sender: FDA-Public Use
  Company Number: IN-VALIDUS PHARMACEUTICALS LLC-IN-2016VAL000193

PATIENT
  Age: 15 Year
  Sex: Male

DRUGS (2)
  1. CARBAMAZEPINE. [Suspect]
     Active Substance: CARBAMAZEPINE
     Indication: IMPULSIVE BEHAVIOUR
     Dosage: 200 MG/DAY
  2. CARBAMAZEPINE. [Suspect]
     Active Substance: CARBAMAZEPINE
     Dosage: 400 MG, UNK (ESCALATED OVER 3 DAYS)

REACTIONS (12)
  - Visual impairment [Recovering/Resolving]
  - Optic disc disorder [Recovering/Resolving]
  - Pupillary reflex impaired [Recovering/Resolving]
  - Optic disc hyperaemia [Recovering/Resolving]
  - Rash pruritic [Recovered/Resolved]
  - Colour blindness [Recovering/Resolving]
  - Optic neuropathy [Recovering/Resolving]
  - Hypersensitivity [Recovered/Resolved]
  - Eye pain [Recovering/Resolving]
  - Retinal vascular disorder [Recovering/Resolving]
  - Pupils unequal [Recovering/Resolving]
  - Visual field defect [Recovering/Resolving]
